FAERS Safety Report 18778810 (Version 1)
Quarter: 2021Q1

REPORT INFORMATION
  Report Type: Spontaneous
  Country: US (occurrence: US)
  Receive Date: 20210124
  Receipt Date: 20210124
  Transmission Date: 20210419
  Serious: No
  Sender: FDA-Public Use
  Company Number: US-TEVA-2021-US-1871666

PATIENT
  Age: 69 Year
  Sex: Female
  Weight: 91.16 kg

DRUGS (1)
  1. FEXOFENADINE [Suspect]
     Active Substance: FEXOFENADINE HYDROCHLORIDE
     Indication: PRODUCT USED FOR UNKNOWN INDICATION
     Dosage: FEXOFENADINE 180 MG 571 (FEXOFENADINE) TABLET {LOT # 0ER0395 (2000015223); EXP.DT. DEC?2021}, SINGLE
     Route: 048
     Dates: start: 20210113, end: 20210113

REACTIONS (3)
  - Inappropriate schedule of product administration [Unknown]
  - Memory impairment [Unknown]
  - Product administered to patient of inappropriate age [Unknown]

NARRATIVE: CASE EVENT DATE: 20210113
